FAERS Safety Report 25577422 (Version 1)
Quarter: 2025Q3

REPORT INFORMATION
  Report Type: Spontaneous
  Country: US (occurrence: US)
  Receive Date: 20250718
  Receipt Date: 20250718
  Transmission Date: 20251020
  Serious: No
  Sender: VERTEX
  Company Number: US-VERTEX PHARMACEUTICALS-2025-011372

PATIENT
  Age: 71 Year
  Sex: Female

DRUGS (2)
  1. SUZETRIGINE [Suspect]
     Active Substance: SUZETRIGINE
     Indication: Pain
     Route: 048
     Dates: start: 20250611, end: 2025
  2. SUZETRIGINE [Suspect]
     Active Substance: SUZETRIGINE
     Route: 048
     Dates: start: 2025

REACTIONS (2)
  - Tremor [Unknown]
  - Pruritus [Unknown]

NARRATIVE: CASE EVENT DATE: 20250626
